FAERS Safety Report 10529268 (Version 3)
Quarter: 2014Q4

REPORT INFORMATION
  Report Type: Spontaneous
  Country: JP (occurrence: JP)
  Receive Date: 20141020
  Receipt Date: 20141112
  Transmission Date: 20150528
  Serious: Yes (Death, Life-Threatening, Hospitalization, Other)
  Sender: FDA-Public Use
  Company Number: PHHY2012JP134640

PATIENT
  Age: 56 Year
  Sex: Male
  Weight: 44 kg

DRUGS (7)
  1. AZUNOL//SODIUM GUALENATE [Concomitant]
     Indication: PRODUCT USED FOR UNKNOWN INDICATION
     Dosage: UNK
     Route: 065
     Dates: start: 20120326, end: 20121022
  2. AFINITOR [Suspect]
     Active Substance: EVEROLIMUS
     Dosage: 5 MG, DAILY
     Route: 048
     Dates: start: 20120404, end: 20120710
  3. SENNOSIDE [Concomitant]
     Active Substance: SENNOSIDES
     Indication: CONSTIPATION
     Dosage: 2 MG, UNK
     Route: 048
     Dates: start: 20120326, end: 20120422
  4. AFINITOR [Suspect]
     Active Substance: EVEROLIMUS
     Indication: RENAL CELL CARCINOMA
     Dosage: 10 MG, DAILY
     Route: 048
     Dates: start: 20120326, end: 20120404
  5. AFINITOR [Suspect]
     Active Substance: EVEROLIMUS
     Dosage: 10 MG, DAILY
     Route: 048
     Dates: start: 20120711, end: 20121022
  6. VOLTAREN//DICLOFENAC SODIUM [Concomitant]
     Indication: PAIN
     Dosage: 60 MG, UNK
     Route: 065
  7. TRAMAL [Concomitant]
     Active Substance: TRAMADOL
     Indication: PAIN
     Dosage: UNK
     Route: 065

REACTIONS (8)
  - Decreased appetite [Unknown]
  - Blood pressure increased [Recovered/Resolved]
  - Pneumonia [Unknown]
  - Pain [Unknown]
  - Mouth ulceration [Recovering/Resolving]
  - Renal disorder [Unknown]
  - Lymphadenopathy [Unknown]
  - Metastases to lung [Fatal]

NARRATIVE: CASE EVENT DATE: 20120404
